FAERS Safety Report 8503376-9 (Version None)
Quarter: 2012Q3

REPORT INFORMATION
  Report Type: 
  Country: None (occurrence: None)
  Receive Date: 20120711
  Receipt Date: 20120706
  Transmission Date: 20120928
  Serious: No
  Sender: FDA-Public Use
  Company Number: US-PFIZER INC-2012111409

PATIENT
  Sex: Female
  Weight: 77.551 kg

DRUGS (8)
  1. DILANTIN [Suspect]
     Indication: CONVULSION
     Dosage: 500 MG, IN A DAY
     Route: 048
  2. NORVASC [Concomitant]
     Dosage: UNK
  3. EFFIENT [Concomitant]
     Indication: ANTICOAGULANT THERAPY
     Dosage: 10 MG, UNK
  4. LIPITOR [Concomitant]
     Dosage: UNK, 1X/DAY
  5. LETROZOLE [Concomitant]
     Indication: BREAST CANCER
     Dosage: UNK
  6. DILANTIN [Suspect]
     Dosage: 200 MG, 2X/DAY
     Route: 048
  7. ASPIRIN [Concomitant]
     Dosage: UNK, 1X/DAY
  8. KEPPRA [Concomitant]
     Indication: CONVULSION
     Dosage: 500 MG, 2X/DAY

REACTIONS (1)
  - HYPOTENSION [None]
